FAERS Safety Report 5276751-6 (Version None)
Quarter: 2007Q2

REPORT INFORMATION
  Report Type: 
  Country: None (occurrence: None)
  Receive Date: 20070327
  Receipt Date: 20070319
  Transmission Date: 20071010
  Serious: Yes (Hospitalization)
  Sender: FDA-Public Use
  Company Number: US-JNJFOC-20070305241

PATIENT
  Age: 44 Year
  Sex: Male

DRUGS (11)
  1. PREZISTA [Suspect]
     Indication: HIV INFECTION
     Route: 048
  2. MK0518 [Suspect]
     Indication: HIV INFECTION
     Route: 048
  3. RITONAVIR [Suspect]
     Indication: HIV INFECTION
     Route: 048
  4. TRUVADA [Suspect]
     Indication: HIV INFECTION
     Route: 048
  5. FENOFIBRATE [Concomitant]
     Route: 065
  6. GLIMEPIRIDE [Concomitant]
     Route: 065
  7. INSULIN LISPRO [Concomitant]
     Route: 065
  8. NIACIN [Concomitant]
     Route: 065
  9. OMACOR [Concomitant]
     Route: 065
  10. PANTOPRAZOLE SODIUM [Concomitant]
     Route: 065
  11. ROSIGLITAZONE MALEATE [Concomitant]
     Route: 065

REACTIONS (1)
  - PAROTITIS [None]
